FAERS Safety Report 9157799 (Version 1)
Quarter: 2013Q1

REPORT INFORMATION
  Report Type: Spontaneous
  Country: DK (occurrence: None)
  Receive Date: 20130213
  Receipt Date: 20130213
  Transmission Date: 20140127
  Serious: Yes (Hospitalization)
  Sender: FDA-Public Use
  Company Number: 2013MA000984

PATIENT
  Sex: Female

DRUGS (5)
  1. FEVERALL [Suspect]
     Indication: PRODUCT USED FOR UNKNOWN INDICATION
  2. IBUPROFEN ORAL SUSPENSION USP, 100 MG/5 ML (RX) (ALPHARMA) (IBUPROFEN) [Suspect]
  3. TRAMADOL HYDROCHLORIDE TABLETS, 50 MG (PUREPAC) (TRAMADOL) [Suspect]
  4. VENLAFAXINE (VENLAFAXINE) [Suspect]
  5. BROMAZEPAM (BROMAZEPAM) [Suspect]

REACTIONS (3)
  - Respiratory depression [None]
  - Respiratory acidosis [None]
  - Sopor [None]
